FAERS Safety Report 21929451 (Version 2)
Quarter: 2025Q1

REPORT INFORMATION
  Report Type: Spontaneous
  Country: US (occurrence: US)
  Receive Date: 20230131
  Receipt Date: 20250227
  Transmission Date: 20250408
  Serious: Yes (Other)
  Sender: UCB
  Company Number: US-UCBSA-2022039565

PATIENT
  Age: 71 Year
  Sex: Female

DRUGS (3)
  1. LEVETIRACETAM [Suspect]
     Active Substance: LEVETIRACETAM
     Indication: Seizure
     Route: 042
  2. FOSPHENYTOIN [Concomitant]
     Active Substance: FOSPHENYTOIN
     Indication: Seizure
  3. VALPROIC ACID [Concomitant]
     Active Substance: VALPROIC ACID
     Indication: Seizure

REACTIONS (1)
  - Seizure [Recovered/Resolved]
